FAERS Safety Report 6507720-3 (Version None)
Quarter: 2009Q4

REPORT INFORMATION
  Report Type: 
  Country: None (occurrence: None)
  Receive Date: 20091221
  Receipt Date: 20091210
  Transmission Date: 20100525
  Serious: No
  Sender: FDA-Public Use
  Company Number: US-ROXANE LABORATORIES, INC.-2009-RO-01250RO

PATIENT
  Sex: Male

DRUGS (4)
  1. PREDNISONE [Suspect]
     Indication: URTICARIA
     Route: 048
     Dates: start: 20091122, end: 20091126
  2. HYDROXYZINE [Suspect]
     Indication: URTICARIA
     Route: 048
     Dates: start: 20091118
  3. AMOXICILLIN [Suspect]
     Indication: TOOTH DISORDER
     Route: 048
     Dates: start: 20091114, end: 20091117
  4. BENADRYL [Concomitant]

REACTIONS (2)
  - PRURITUS [None]
  - WHEEZING [None]
